FAERS Safety Report 6530581-3 (Version None)
Quarter: 2010Q1

REPORT INFORMATION
  Report Type: 
  Country: None (occurrence: None)
  Receive Date: 20100106
  Receipt Date: 20100106
  Transmission Date: 20100710
  Serious: No
  Sender: FDA-Public Use
  Company Number: None

PATIENT

DRUGS (2)
  1. MIDODRINE HYDROCHLORIDE [Suspect]
     Indication: AUTONOMIC DYSREFLEXIA
  2. MIDODRINE HYDROCHLORIDE [Suspect]
     Indication: ORTHOSTATIC HYPOTENSION

REACTIONS (2)
  - EYE INFECTION [None]
  - EYE PRURITUS [None]
